FAERS Safety Report 11459817 (Version 1)
Quarter: 2015Q3

REPORT INFORMATION
  Report Type: Spontaneous
  Country: US (occurrence: US)
  Receive Date: 20150904
  Receipt Date: 20150904
  Transmission Date: 20151125
  Serious: Yes (Other)
  Sender: FDA-Public Use
  Company Number: US-ASTRAZENECA-2015SE83334

PATIENT
  Sex: Male

DRUGS (16)
  1. OMEPRAZOLE. [Concomitant]
     Active Substance: OMEPRAZOLE
  2. HYDROCODONE [Concomitant]
     Active Substance: HYDROCODONE
  3. ALLOPURINOL. [Concomitant]
     Active Substance: ALLOPURINOL
  4. FUROSEMIDE. [Concomitant]
     Active Substance: FUROSEMIDE
  5. PROCARDIA [Suspect]
     Active Substance: NIFEDIPINE
     Route: 065
  6. ISOSORBIDE. [Concomitant]
     Active Substance: ISOSORBIDE
  7. AMIDRONE [Concomitant]
  8. INLYTA [Suspect]
     Active Substance: AXITINIB
     Route: 065
  9. LEVEMIR [Concomitant]
     Active Substance: INSULIN DETEMIR
  10. FENOFIBRATE. [Concomitant]
     Active Substance: FENOFIBRATE
  11. TOPROL XL [Concomitant]
     Active Substance: METOPROLOL SUCCINATE
  12. CRESTOR [Suspect]
     Active Substance: ROSUVASTATIN CALCIUM
     Route: 048
  13. HUMALOG [Concomitant]
     Active Substance: INSULIN LISPRO
  14. WARFARIN [Concomitant]
     Active Substance: WARFARIN
  15. ROPINROLE [Concomitant]
  16. REMRON [Concomitant]

REACTIONS (2)
  - Renal cancer [Unknown]
  - Drug hypersensitivity [Unknown]
